FAERS Safety Report 19224617 (Version 2)
Quarter: 2021Q3

REPORT INFORMATION
  Report Type: Spontaneous
  Country: US (occurrence: US)
  Receive Date: 20210505
  Receipt Date: 20210930
  Transmission Date: 20211014
  Serious: Yes (Other)
  Sender: FDA-Public Use
  Company Number: US-GILEAD-2021-0527884

PATIENT
  Sex: Female
  Weight: 113.38 kg

DRUGS (32)
  1. IBUPROFEN. [Concomitant]
     Active Substance: IBUPROFEN
  2. MONISTAT [Concomitant]
     Active Substance: MICONAZOLE NITRATE
  3. TIVORBEX [Concomitant]
     Active Substance: INDOMETHACIN
  4. TYLENOL [Concomitant]
     Active Substance: ACETAMINOPHEN
  5. NORVIR [Concomitant]
     Active Substance: RITONAVIR
  6. DICLOFENAC [Concomitant]
     Active Substance: DICLOFENAC
  7. DEXAMETHASONE. [Concomitant]
     Active Substance: DEXAMETHASONE
  8. DIFLUCAN [Concomitant]
     Active Substance: FLUCONAZOLE
  9. PRAVACHOL [Concomitant]
     Active Substance: PRAVASTATIN SODIUM
  10. ZETIA [Concomitant]
     Active Substance: EZETIMIBE
  11. HYDROCORTISONE. [Concomitant]
     Active Substance: HYDROCORTISONE
  12. LEXIVA [Concomitant]
     Active Substance: FOSAMPRENAVIR CALCIUM
  13. MARINOL [ALLOPURINOL] [Concomitant]
     Active Substance: ALLOPURINOL
  14. TRIAMCINOLONE [Concomitant]
     Active Substance: TRIAMCINOLONE
  15. VITAMIN D2 [Concomitant]
     Active Substance: ERGOCALCIFEROL
  16. BACTRIM [Concomitant]
     Active Substance: SULFAMETHOXAZOLE\TRIMETHOPRIM
  17. LIPITOR [Concomitant]
     Active Substance: ATORVASTATIN CALCIUM
  18. ALBUTEROL SULFATE. [Concomitant]
     Active Substance: ALBUTEROL SULFATE
  19. CLARITINE [Concomitant]
     Active Substance: LORATADINE
  20. FLUTICASONE. [Concomitant]
     Active Substance: FLUTICASONE
  21. TERBINAFINE. [Concomitant]
     Active Substance: TERBINAFINE
  22. BIKTARVY [Concomitant]
     Active Substance: BICTEGRAVIR SODIUM\EMTRICITABINE\TENOFOVIR ALAFENAMIDE FUMARATE
  23. CAPSAICIN. [Concomitant]
     Active Substance: CAPSAICIN
  24. TRUVADA [Suspect]
     Active Substance: EMTRICITABINE\TENOFOVIR DISOPROXIL FUMARATE
     Indication: HIV INFECTION
     Dosage: UNK
     Route: 048
     Dates: start: 2004
  25. TRUVADA [Suspect]
     Active Substance: EMTRICITABINE\TENOFOVIR DISOPROXIL FUMARATE
     Dosage: UNK
     Route: 048
     Dates: start: 2005, end: 20190306
  26. PREZISTA [Concomitant]
     Active Substance: DARUNAVIR ETHANOLATE
  27. CEPACOL [BENZOCAINE] [Concomitant]
  28. VENTOLIN [Concomitant]
     Active Substance: ALBUTEROL SULFATE
  29. ATORVASTATIN [Concomitant]
     Active Substance: ATORVASTATIN
  30. LIDOCAINE. [Concomitant]
     Active Substance: LIDOCAINE
  31. OXYCODONE [Concomitant]
     Active Substance: OXYCODONE
  32. COLACE [Concomitant]
     Active Substance: DOCUSATE SODIUM

REACTIONS (8)
  - Musculoskeletal disorder [Unknown]
  - Osteoporosis [Not Recovered/Not Resolved]
  - Emotional distress [Not Recovered/Not Resolved]
  - Gait disturbance [Unknown]
  - Anxiety [Not Recovered/Not Resolved]
  - Pain [Not Recovered/Not Resolved]
  - Anhedonia [Not Recovered/Not Resolved]
  - Dysstasia [Unknown]

NARRATIVE: CASE EVENT DATE: 2019
